FAERS Safety Report 11639128 (Version 2)
Quarter: 2016Q1

REPORT INFORMATION
  Report Type: Spontaneous
  Country: US (occurrence: US)
  Receive Date: 20151019
  Receipt Date: 20160205
  Transmission Date: 20160525
  Serious: No
  Sender: FDA-Public Use
  Company Number: US-009507513-1510USA004344

PATIENT
  Age: 22 Year
  Sex: Female

DRUGS (1)
  1. NEXPLANON [Suspect]
     Active Substance: ETONOGESTREL
     Dosage: UNK
     Route: 059
     Dates: start: 20150409, end: 20151007

REACTIONS (6)
  - Haemorrhagic disorder [Unknown]
  - Migraine [Unknown]
  - Complication associated with device [Recovered/Resolved]
  - Device deployment issue [Recovered/Resolved]
  - Device difficult to use [Recovered/Resolved]
  - Device dislocation [Recovered/Resolved]

NARRATIVE: CASE EVENT DATE: 2015
